FAERS Safety Report 5595412-7 (Version None)
Quarter: 2008Q1

REPORT INFORMATION
  Report Type: 
  Country: None (occurrence: None)
  Receive Date: 20080118
  Receipt Date: 20080111
  Transmission Date: 20080703
  Serious: Yes (Hospitalization, Other)
  Sender: FDA-Public Use
  Company Number: JP-JNJFOC-20080103843

PATIENT
  Age: 69 Year
  Sex: Female

DRUGS (4)
  1. FINIBAX [Suspect]
     Indication: PYREXIA
     Route: 041
  2. CEFEPIME DIHYDROCHLORIDE HYDRATE [Suspect]
     Indication: PREMEDICATION
     Route: 065
  3. FLUOROURACIL [Suspect]
     Indication: OROPHARYNGEAL CANCER STAGE UNSPECIFIED
     Route: 065
  4. BRIPLATIN [Suspect]
     Indication: OROPHARYNGEAL CANCER STAGE UNSPECIFIED
     Route: 065

REACTIONS (1)
  - PANCYTOPENIA [None]
